FAERS Safety Report 4361748-0 (Version None)
Quarter: 2004Q2

REPORT INFORMATION
  Report Type: 
  Country: None (occurrence: None)
  Receive Date: 20040519
  Receipt Date: 20040519
  Transmission Date: 20050107
  Serious: Yes (Life-Threatening)
  Sender: FDA-Public Use
  Company Number: None

PATIENT
  Age: 77 Year
  Sex: Male

DRUGS (10)
  1. PHENYLEPHRINE [Suspect]
     Indication: HYPOTENSION
     Dosage: 10 MG IV ONCE
     Route: 042
  2. CEFEPIME [Concomitant]
  3. METRONIDAZOLE [Concomitant]
  4. PANTOPRAZOLE [Concomitant]
  5. DIGOXIN [Concomitant]
  6. SLIDING-SCALE INSULIN [Concomitant]
  7. VALPROIC ACID [Concomitant]
  8. ACETAMINOPHEN [Concomitant]
  9. LORAZEPAM [Concomitant]
  10. MORPHINE [Concomitant]

REACTIONS (4)
  - BLOOD PRESSURE DIASTOLIC DECREASED [None]
  - BLOOD PRESSURE SYSTOLIC INCREASED [None]
  - MEDICATION ERROR [None]
  - OVERDOSE [None]
